FAERS Safety Report 17426771 (Version 2)
Quarter: 2020Q1

REPORT INFORMATION
  Report Type: Spontaneous
  Country: BG (occurrence: BG)
  Receive Date: 20200218
  Receipt Date: 20200316
  Transmission Date: 20200409
  Serious: Yes (Other)
  Sender: FDA-Public Use
  Company Number: BG-REGENERON PHARMACEUTICALS, INC.-2020-19598

PATIENT

DRUGS (5)
  1. EYLEA [Suspect]
     Active Substance: AFLIBERCEPT
     Dosage: LOADING DOSE
  2. EYLEA [Suspect]
     Active Substance: AFLIBERCEPT
     Indication: PRODUCT USED FOR UNKNOWN INDICATION
     Dosage: LOADING DOSE
  3. EYLEA [Suspect]
     Active Substance: AFLIBERCEPT
     Dosage: FOURTH DOSE, 3 MONTHS AFTER THE LAST LOADING DOSE
  4. TRIAMCINOLONE [Concomitant]
     Active Substance: TRIAMCINOLONE
     Indication: PRODUCT USED FOR UNKNOWN INDICATION
  5. EYLEA [Suspect]
     Active Substance: AFLIBERCEPT
     Dosage: LOADING DOSE

REACTIONS (3)
  - Inappropriate schedule of product administration [Unknown]
  - Retinopathy [Unknown]
  - Choroidal neovascularisation [Unknown]
